FAERS Safety Report 17532698 (Version 2)
Quarter: 2020Q4

REPORT INFORMATION
  Report Type: Spontaneous
  Country: US (occurrence: US)
  Receive Date: 20200305
  Receipt Date: 20201120
  Transmission Date: 20210113
  Serious: Yes (Other)
  Sender: FDA-Public Use
  Company Number: 1626962-2020-00001

PATIENT

DRUGS (1)
  1. HENDEL NERVE PAIN RELIEF TABLETS [Suspect]
     Active Substance: HOMEOPATHICS
     Route: 048

REACTIONS (4)
  - Back pain [Unknown]
  - Headache [Unknown]
  - Anxiety [Unknown]
  - Vertigo [Unknown]
